FAERS Safety Report 8760774 (Version 2)
Quarter: 2012Q4

REPORT INFORMATION
  Report Type: Report from Study
  Country: TR (occurrence: TR)
  Receive Date: 20120830
  Receipt Date: 20121003
  Transmission Date: 20130627
  Serious: Yes (Death)
  Sender: FDA-Public Use
  Company Number: PHHY2012TR074808

PATIENT
  Age: 80 Year
  Sex: Male

DRUGS (2)
  1. EXELON [Suspect]
     Indication: DEMENTIA ALZHEIMER^S TYPE
     Dosage: 9.5 mg, UNK
     Route: 062
     Dates: start: 20120327
  2. MEMANTINE [Concomitant]
     Indication: DEMENTIA
     Dosage: 20 mg, UNK

REACTIONS (1)
  - Respiratory failure [Fatal]
